FAERS Safety Report 5903566-5 (Version None)
Quarter: 2008Q3

REPORT INFORMATION
  Report Type: 
  Country: None (occurrence: None)
  Receive Date: 20080919
  Receipt Date: 20080611
  Transmission Date: 20090109
  Serious: No
  Sender: FDA-Public Use
  Company Number: US-WYE-H04517308

PATIENT
  Sex: Female

DRUGS (3)
  1. PRISTIQ [Suspect]
     Indication: ASTHENIA
     Dosage: 50 MG 1X PER 1 DAY, ORAL
     Route: 048
     Dates: start: 20080609
  2. XANAX [Concomitant]
  3. ADDERALL (AMFETAMINE ASPARTATE/AMFETAMIE SULFATE/DEXAMFETAMINE SACCHAR [Concomitant]

REACTIONS (6)
  - ANXIETY [None]
  - DYSPNOEA [None]
  - HYPERHIDROSIS [None]
  - INSOMNIA [None]
  - OEDEMA PERIPHERAL [None]
  - UNEVALUABLE EVENT [None]
